FAERS Safety Report 19919716 (Version 1)
Quarter: 2021Q4

REPORT INFORMATION
  Report Type: Spontaneous
  Country: US (occurrence: US)
  Receive Date: 20211005
  Receipt Date: 20211005
  Transmission Date: 20220303
  Serious: No
  Sender: FDA-Public Use
  Company Number: US-MEDICUREINC-2021USSPO00004

PATIENT
  Sex: Male

DRUGS (2)
  1. ZYPITAMAG [Suspect]
     Active Substance: PITAVASTATIN
     Indication: Product used for unknown indication
     Dates: start: 202109
  2. VASCEPA [Suspect]
     Active Substance: ICOSAPENT ETHYL
     Indication: Product used for unknown indication

REACTIONS (1)
  - Pain in extremity [Unknown]

NARRATIVE: CASE EVENT DATE: 20210101
